FAERS Safety Report 26195223 (Version 2)
Quarter: 2025Q4

REPORT INFORMATION
  Report Type: Spontaneous
  Country: EU (occurrence: EU)
  Receive Date: 20251224
  Receipt Date: 20251231
  Transmission Date: 20260118
  Serious: Yes (Death)
  Sender: ROCHE
  Company Number: EU-ROCHE-10000465359

PATIENT
  Sex: Female

DRUGS (1)
  1. VISMODEGIB [Suspect]
     Active Substance: VISMODEGIB
     Indication: Product used for unknown indication

REACTIONS (4)
  - Off label use [Unknown]
  - Myalgia [Unknown]
  - Headache [Unknown]
  - Death [Fatal]
